FAERS Safety Report 5327835-5 (Version None)
Quarter: 2007Q2

REPORT INFORMATION
  Report Type: 
  Country: None (occurrence: None)
  Receive Date: 20070517
  Receipt Date: 20070511
  Transmission Date: 20071010
  Serious: Yes (Hospitalization)
  Sender: FDA-Public Use
  Company Number: FR-ASTRAZENECA-2007CG00751

PATIENT
  Age: 64 Year
  Sex: Male

DRUGS (5)
  1. DIPRIVAN [Suspect]
     Indication: ANAESTHESIA
     Route: 042
     Dates: start: 20070403, end: 20070403
  2. TRACRIUM [Suspect]
     Indication: ANAESTHESIA
     Route: 042
     Dates: start: 20070403, end: 20070403
  3. SUFENTA [Suspect]
     Indication: ANAESTHESIA
     Route: 042
     Dates: start: 20070403, end: 20070403
  4. FLAGYL [Suspect]
     Route: 042
     Dates: start: 20070403
  5. CLAFORAN [Suspect]
     Route: 042
     Dates: start: 20070403

REACTIONS (1)
  - DISSEMINATED INTRAVASCULAR COAGULATION [None]
